FAERS Safety Report 20258597 (Version 1)
Quarter: 2021Q4

REPORT INFORMATION
  Report Type: Spontaneous
  Country: FR (occurrence: FR)
  Receive Date: 20211230
  Receipt Date: 20211230
  Transmission Date: 20220303
  Serious: Yes (Hospitalization)
  Sender: FDA-Public Use
  Company Number: None

PATIENT
  Age: 65 Year
  Sex: Female
  Weight: 56 kg

DRUGS (4)
  1. VINCRISTINE SULFATE [Suspect]
     Active Substance: VINCRISTINE SULFATE
     Indication: Extranodal marginal zone B-cell lymphoma (MALT type)
     Dosage: 0.97MILLIGRAM
     Route: 042
     Dates: start: 202103
  2. PREDNISONE [Suspect]
     Active Substance: PREDNISONE
     Indication: Extranodal marginal zone B-cell lymphoma (MALT type)
     Dosage: 100MILLIGRAM
     Route: 042
     Dates: start: 20210318
  3. CYCLOPHOSPHAMIDE [Suspect]
     Active Substance: CYCLOPHOSPHAMIDE
     Indication: Extranodal marginal zone B-cell lymphoma (MALT type)
     Dosage: 1140MILLIGRAM
     Route: 042
     Dates: start: 20210318
  4. RITUXIMAB [Suspect]
     Active Substance: RITUXIMAB
     Indication: Extranodal marginal zone B-cell lymphoma (MALT type)
     Dosage: RITUXIMAB ((MAMMIFERE/HAMSTER/CELLULES CHO)),UNIT DOSE:570MILLIGRAM
     Route: 042
     Dates: start: 20210318

REACTIONS (2)
  - Diverticulitis [Recovering/Resolving]
  - Abdominal pain [Recovering/Resolving]

NARRATIVE: CASE EVENT DATE: 20210401
